FAERS Safety Report 7980144-8 (Version None)
Quarter: 2011Q4

REPORT INFORMATION
  Report Type: 
  Country: None (occurrence: None)
  Receive Date: 20111212
  Receipt Date: 20111205
  Transmission Date: 20120403
  Serious: Yes (Other)
  Sender: FDA-Public Use
  Company Number: 7099747

PATIENT
  Sex: Female

DRUGS (2)
  1. LEVOTHYROXINE SODIUM [Suspect]
     Indication: PRODUCT USED FOR UNKNOWN INDICATION
     Dosage: HALF TABLET (0.5 DF, 1 IN 1 D)
     Route: 048
  2. RAMIPRIL HEXAL 5 UG (RAMIPRIL) (5 MICROGRAM) [Concomitant]

REACTIONS (1)
  - BLOOD PRESSURE ABNORMAL [None]
